FAERS Safety Report 14012403 (Version 4)
Quarter: 2018Q1

REPORT INFORMATION
  Report Type: Spontaneous
  Country: JP (occurrence: JP)
  Receive Date: 20170926
  Receipt Date: 20180110
  Transmission Date: 20180508
  Serious: Yes (Hospitalization, Other)
  Sender: FDA-Public Use
  Company Number: JP-PFIZER INC-2017411766

PATIENT
  Age: 55 Year
  Sex: Male
  Weight: 77.6 kg

DRUGS (7)
  1. CELECOX [Suspect]
     Active Substance: CELECOXIB
     Indication: PROCEDURAL PAIN
     Dosage: 200 MG, 2X/DAY
     Route: 048
     Dates: start: 20170828, end: 20170908
  2. LYRICA [Suspect]
     Active Substance: PREGABALIN
     Dosage: 100 MG, DAILY
     Route: 048
     Dates: start: 20170906, end: 20171011
  3. TRAMCET [Suspect]
     Active Substance: ACETAMINOPHEN\TRAMADOL
     Indication: PAIN
     Dosage: 4 DF, (TABLETS) DAILY
     Route: 048
     Dates: end: 20170825
  4. TRAMCET [Suspect]
     Active Substance: ACETAMINOPHEN\TRAMADOL
     Dosage: 1 DF (TABLET), 2X/DAY
     Route: 048
     Dates: start: 20170826, end: 20170911
  5. LYRICA [Suspect]
     Active Substance: PREGABALIN
     Indication: NEURALGIA
     Dosage: 75 MG, DAILY
     Route: 048
     Dates: start: 20170609, end: 20170905
  6. CELECOX [Suspect]
     Active Substance: CELECOXIB
     Dosage: 100 MG, 2X/DAY
     Route: 048
     Dates: start: 20170909, end: 20170913
  7. TRAMCET [Suspect]
     Active Substance: ACETAMINOPHEN\TRAMADOL
     Dosage: 1 DF (TABLET), 1X/DAY
     Route: 048
     Dates: start: 20170912, end: 20171011

REACTIONS (7)
  - Device dislocation [Recovered/Resolved]
  - Drug-induced liver injury [Recovering/Resolving]
  - Condition aggravated [Unknown]
  - Hepatic function abnormal [Recovering/Resolving]
  - Spondylolisthesis [Unknown]
  - Bone marrow disorder [Unknown]
  - Polycythaemia [Unknown]

NARRATIVE: CASE EVENT DATE: 20170818
